FAERS Safety Report 9624043 (Version 1)
Quarter: 2013Q4

REPORT INFORMATION
  Report Type: Spontaneous
  Country: US (occurrence: None)
  Receive Date: 20131010
  Receipt Date: 20131010
  Transmission Date: 20140711
  Serious: Yes (Hospitalization)
  Sender: FDA-Public Use
  Company Number: B0928661A

PATIENT
  Age: 74 Year
  Sex: Male

DRUGS (4)
  1. ROPINIROLE HYDROCHLORIDE [Suspect]
  2. AMANTADINE [Suspect]
  3. BENSERAZIDE + LEVODOPA [Suspect]
  4. LEVODOPA [Suspect]
     Route: 042

REACTIONS (3)
  - Dystonia [None]
  - Glossoptosis [None]
  - Pneumonia aspiration [None]
